FAERS Safety Report 15802850 (Version 2)
Quarter: 2019Q1

REPORT INFORMATION
  Report Type: Spontaneous
  Country: US (occurrence: US)
  Receive Date: 20190109
  Receipt Date: 20190325
  Transmission Date: 20190417
  Serious: Yes (Other)
  Sender: FDA-Public Use
  Company Number: US-BAYER-2019-005239

PATIENT
  Age: 21 Year
  Sex: Male

DRUGS (7)
  1. CIPRO [Suspect]
     Active Substance: CIPROFLOXACIN HYDROCHLORIDE
     Indication: GASTROINTESTINAL INFECTION
     Dosage: 500 MG, BID
     Route: 048
     Dates: start: 20170208
  2. ACETAMINOPHEN;HYDROCODONE [Concomitant]
     Active Substance: ACETAMINOPHEN\HYDROCODONE
     Dosage: UNK
     Dates: start: 20170208
  3. MESALAMINE. [Concomitant]
     Active Substance: MESALAMINE
     Dosage: 2.4 G, QD
     Dates: start: 20170208
  4. CYCLOBENZAPRINE. [Concomitant]
     Active Substance: CYCLOBENZAPRINE
     Dosage: UNK
     Dates: start: 20170208
  5. ONDASETRON [ONDANSETRON] [Concomitant]
  6. METRONIDAZOLE. [Concomitant]
     Active Substance: METRONIDAZOLE
     Dosage: 1 DF, Q8HR
     Dates: start: 20170208
  7. PREDNISONE. [Concomitant]
     Active Substance: PREDNISONE
     Dosage: 5 MG, QD

REACTIONS (12)
  - Meniscus injury [None]
  - Arthralgia [Not Recovered/Not Resolved]
  - Arthralgia [None]
  - Chest pain [Not Recovered/Not Resolved]
  - Vitamin D decreased [None]
  - Eye disorder [None]
  - Rash [None]
  - Nerve injury [Not Recovered/Not Resolved]
  - Skin exfoliation [None]
  - Patellofemoral pain syndrome [None]
  - Tremor [Recovered/Resolved]
  - Musculoskeletal pain [Not Recovered/Not Resolved]

NARRATIVE: CASE EVENT DATE: 2017
